FAERS Safety Report 6019017-9 (Version None)
Quarter: 2008Q4

REPORT INFORMATION
  Report Type: 
  Country: None (occurrence: None)
  Receive Date: 20081221
  Receipt Date: 20081221
  Transmission Date: 20090506
  Serious: Yes (Other)
  Sender: FDA-Public Use
  Company Number: None

PATIENT
  Age: 69 Year
  Sex: Female
  Weight: 77.1115 kg

DRUGS (2)
  1. ISOSORBIDE MONONITRATE [Suspect]
     Indication: HYPERTENSION
     Dosage: ONE TABLET DAILY PO
     Route: 048
     Dates: start: 20081002, end: 20081218
  2. ISOSORBIDE MONONITRATE [Suspect]
     Indication: MYOCARDIAL INFARCTION
     Dosage: ONE TABLET DAILY PO
     Route: 048
     Dates: start: 20081002, end: 20081218

REACTIONS (2)
  - DIZZINESS [None]
  - DYSSTASIA [None]
